FAERS Safety Report 5047836-4 (Version None)
Quarter: 2006Q3

REPORT INFORMATION
  Report Type: 
  Country: None (occurrence: None)
  Receive Date: 20060711
  Receipt Date: 20060626
  Transmission Date: 20061208
  Serious: Yes (Hospitalization)
  Sender: FDA-Public Use
  Company Number: AU-AMGEN-US184257

PATIENT
  Sex: Male

DRUGS (3)
  1. CINACALCET [Suspect]
     Indication: HYPERPARATHYROIDISM SECONDARY
     Route: 048
     Dates: start: 20051209
  2. LIPITOR [Suspect]
  3. ALLOPURINOL [Suspect]

REACTIONS (4)
  - CHOLESTASIS [None]
  - GASTROENTERITIS [None]
  - LIVER FUNCTION TEST ABNORMAL [None]
  - RENAL FAILURE ACUTE [None]
